FAERS Safety Report 5128853-2 (Version None)
Quarter: 2006Q4

REPORT INFORMATION
  Report Type: 
  Country: None (occurrence: None)
  Receive Date: 20061017
  Receipt Date: 20061006
  Transmission Date: 20070319
  Serious: Yes (Other)
  Sender: FDA-Public Use
  Company Number: GB-JNJFOC-20061001928

PATIENT
  Age: 81 Year
  Sex: Female

DRUGS (4)
  1. TRAMACET [Suspect]
     Indication: ARTHRALGIA
     Route: 048
     Dates: start: 20060914, end: 20060922
  2. ASPIRIN [Concomitant]
     Indication: CEREBROVASCULAR ACCIDENT PROPHYLAXIS
     Route: 048
  3. BENDROFLUAZIDE [Concomitant]
     Indication: BLOOD PRESSURE
     Route: 048
  4. ENALAPRIL MALEATE [Concomitant]
     Indication: BLOOD PRESSURE
     Route: 048

REACTIONS (3)
  - CHILLS [None]
  - EPISTAXIS [None]
  - PARAESTHESIA [None]
